FAERS Safety Report 9424533 (Version 1)
Quarter: 2013Q3

REPORT INFORMATION
  Report Type: Spontaneous
  Country: DE (occurrence: DE)
  Receive Date: 20130729
  Receipt Date: 20130729
  Transmission Date: 20140515
  Serious: Yes (Death, Hospitalization, Other)
  Sender: FDA-Public Use
  Company Number: DE-BAYER-2013-087006

PATIENT
  Age: 70 Year
  Sex: Male

DRUGS (8)
  1. NEXAVAR [Suspect]
     Indication: HEPATOCELLULAR CARCINOMA
     Dosage: 400 MG, BID, AT 08:00 AND 18:30
     Route: 048
     Dates: start: 20120110
  2. NEXAVAR [Interacting]
     Indication: PALLIATIVE CARE
  3. GLIBENCLAMIDE [Interacting]
     Indication: TYPE 2 DIABETES MELLITUS
     Dosage: 3.5 MG, BID
     Route: 048
     Dates: start: 201110
  4. PROPRANOLOL [Concomitant]
  5. RAMIPRIL [Concomitant]
  6. TORASEMIDE [Concomitant]
  7. AMLODIPIN [Concomitant]
  8. NOVAMINSULFON [Concomitant]

REACTIONS (6)
  - Hypoglycaemia [None]
  - Drug interaction [None]
  - Hepatic cirrhosis [None]
  - Hepatorenal syndrome [None]
  - Hepatic encephalopathy [None]
  - Portal vein thrombosis [Fatal]
